FAERS Safety Report 7386305-3 (Version None)
Quarter: 2011Q1

REPORT INFORMATION
  Report Type: 
  Country: None (occurrence: None)
  Receive Date: 20110323
  Receipt Date: 20110310
  Transmission Date: 20110831
  Serious: Yes (Death, Congenital Anomaly)
  Sender: FDA-Public Use
  Company Number: 1000017672

PATIENT
  Sex: Female

DRUGS (3)
  1. DICLECTIN [Suspect]
  2. ESCITALOPRAM OXALATE [Suspect]
     Dosage: TRANSPLACENTAL
     Route: 064
  3. TAMIFLU [Suspect]
     Dosage: TRANSPLACENTAL
     Route: 064

REACTIONS (4)
  - MATERNAL DRUGS AFFECTING FOETUS [None]
  - ABORTION INDUCED [None]
  - LIMB REDUCTION DEFECT [None]
  - DRUG EXPOSURE DURING PREGNANCY [None]
